FAERS Safety Report 10136410 (Version 1)
Quarter: 2014Q2

REPORT INFORMATION
  Report Type: Spontaneous
  Country: GB (occurrence: GB)
  Receive Date: 20140429
  Receipt Date: 20140429
  Transmission Date: 20141212
  Serious: Yes (Other)
  Sender: FDA-Public Use
  Company Number: GB-JNJFOC-20140418681

PATIENT
  Age: 54 Year
  Sex: Male
  Weight: 109 kg

DRUGS (2)
  1. PALEXIA SR [Suspect]
     Indication: BACK PAIN
     Route: 048
     Dates: start: 20140218, end: 20140223
  2. ESOMEPRAZOLE [Concomitant]
     Indication: GASTROOESOPHAGEAL REFLUX DISEASE
     Route: 048
     Dates: start: 2004

REACTIONS (4)
  - Influenza like illness [Recovered/Resolved]
  - Hyperhidrosis [Recovered/Resolved]
  - Myoclonus [Recovered/Resolved]
  - Feeling of body temperature change [Recovered/Resolved]
